FAERS Safety Report 8933137 (Version 2)
Quarter: 2012Q4

REPORT INFORMATION
  Report Type: 
  Country: US (occurrence: US)
  Receive Date: 20121128
  Receipt Date: 20121130
  Transmission Date: 20130627
  Serious: Yes (Other)
  Sender: FDA-Public Use
  Company Number: US-BAYER-2012-124302

PATIENT
  Age: 94 Year
  Sex: Female

DRUGS (1)
  1. PHILLIPS^ MILK OF MAGNESIA LIQUID ORIGINAL [Suspect]

REACTIONS (1)
  - Drug dependence [None]
